FAERS Safety Report 4765949-9 (Version None)
Quarter: 2005Q3

REPORT INFORMATION
  Report Type: 
  Country: None (occurrence: None)
  Receive Date: 20050907
  Receipt Date: 20050825
  Transmission Date: 20060218
  Serious: Yes (Hospitalization, Disabling, Congenital Anomaly)
  Sender: FDA-Public Use
  Company Number: 2005032597

PATIENT
  Sex: Female

DRUGS (8)
  1. RELPAX [Suspect]
     Indication: MIGRAINE
     Dosage: (20 MG), ORAL
     Route: 048
     Dates: start: 20040526
  2. ZOLMITRIPTAN (ZOLMITRIPTAN) [Suspect]
     Indication: MIGRAINE
     Dosage: ORAL
     Route: 048
     Dates: start: 20040812
  3. LEVONORGESTREL AND ETHINYL ESTRADIOL [Concomitant]
  4. BROMAZEPAM (BROMAZEPAM) [Concomitant]
  5. PAROXETINE HCL [Concomitant]
  6. DOMPERIDONE (DOMPERIDONE) [Concomitant]
  7. MIZOLASTINE (MIZOLASTINE) [Concomitant]
  8. LEVOCETIRIZINE (LEVOCETIRIZINE) [Concomitant]

REACTIONS (4)
  - CONGENITAL ANOMALY [None]
  - DRUG EXPOSURE DURING PREGNANCY [None]
  - HAEMANGIOMA [None]
  - TRIGEMINAL NERVE DISORDER [None]
